FAERS Safety Report 5121643-6 (Version None)
Quarter: 2006Q4

REPORT INFORMATION
  Report Type: 
  Country: None (occurrence: None)
  Receive Date: 20061006
  Receipt Date: 20060928
  Transmission Date: 20070319
  Serious: Yes (Hospitalization)
  Sender: FDA-Public Use
  Company Number: PHHO2006MX16345

PATIENT
  Age: 64 Year
  Sex: Female

DRUGS (2)
  1. ZELMAC / HTF 919A [Suspect]
     Indication: IRRITABLE BOWEL SYNDROME
     Dosage: 6 MG, BID
     Route: 048
     Dates: start: 20050801
  2. CRESTOR [Concomitant]

REACTIONS (3)
  - HERNIA HIATUS REPAIR [None]
  - HIATUS HERNIA [None]
  - LAPAROSCOPY [None]
